FAERS Safety Report 5769289-0 (Version None)
Quarter: 2008Q2

REPORT INFORMATION
  Report Type: 
  Country: None (occurrence: None)
  Receive Date: 20080610
  Receipt Date: 20080527
  Transmission Date: 20081010
  Serious: Yes (Other)
  Sender: FDA-Public Use
  Company Number: 2008013968

PATIENT
  Age: 60 Year
  Sex: Male
  Weight: 93 kg

DRUGS (8)
  1. BENADRYL [Suspect]
     Indication: SLEEP APNOEA SYNDROME
     Dosage: 48 TABLETS FOR 4 DAYS, ORAL
     Route: 048
     Dates: start: 20080521, end: 20080525
  2. GEMFIBROZIL [Concomitant]
  3. DULOXETINE (DULOXETINE) [Concomitant]
  4. MIRTAZAPINE [Concomitant]
  5. METOPROLOL TARTRATE [Concomitant]
  6. LAMOTRIGINE [Concomitant]
  7. LEVOTHYROXINE SODIUM [Concomitant]
  8. RISPERDAL [Concomitant]

REACTIONS (2)
  - DISORIENTATION [None]
  - DYSARTHRIA [None]
